FAERS Safety Report 11895071 (Version 1)
Quarter: 2016Q1

REPORT INFORMATION
  Report Type: Report from Study
  Country: KR (occurrence: KR)
  Receive Date: 20160107
  Receipt Date: 20160107
  Transmission Date: 20160526
  Serious: Yes (Hospitalization)
  Sender: FDA-Public Use
  Company Number: KR-TEVA-623105ISR

PATIENT
  Age: 83 Year
  Sex: Female
  Weight: 42 kg

DRUGS (13)
  1. ASPIRIN PROTECT 100MG [Concomitant]
     Indication: ANGINA PECTORIS
     Dosage: 1T
     Route: 048
     Dates: start: 20120308
  2. RIPERIDON1MG [Concomitant]
     Indication: DEPRESSION
     Dosage: 0.25T
     Route: 048
     Dates: start: 20140801
  3. AZILECT [Suspect]
     Active Substance: RASAGILINE MESYLATE
     Indication: PARKINSON^S DISEASE
     Dosage: 1T
     Route: 048
     Dates: start: 20150714
  4. PERKIN 25/100MG [Concomitant]
     Indication: PARKINSON^S DISEASE
     Dosage: 8T, CARBIDOPA 25MG+ LEVODOPA 100MG
     Route: 048
     Dates: start: 20150811
  5. BENZTROPINE 2MG [Concomitant]
     Indication: PARKINSON^S DISEASE
     Route: 048
  6. KANARB 30MG [Concomitant]
     Indication: ANGINA PECTORIS
     Dosage: 1T
     Route: 048
     Dates: start: 20140630
  7. LIVALO 2MG [Concomitant]
     Indication: HYPERCHOLESTEROLAEMIA
     Dosage: 1T
     Route: 048
     Dates: start: 20120308
  8. SLIVAN 0.5MG [Concomitant]
     Indication: DEPRESSION
     Route: 048
  9. STALEVO 200/50/200MG [Concomitant]
     Indication: PARKINSON^S DISEASE
     Dosage: 4T
     Route: 048
     Dates: start: 20150519, end: 20150811
  10. PORTALAC POW 20G/PK [Concomitant]
     Indication: CONSTIPATION
     Dosage: 1PK
     Route: 048
     Dates: start: 20140722
  11. RIPERIDON1MG [Concomitant]
     Dosage: 0.5T
     Route: 048
     Dates: start: 20140801
  12. STALEVO 150/37.5/200MG [Concomitant]
     Indication: PARKINSON^S DISEASE
     Dosage: 1T
     Route: 048
     Dates: start: 20150406
  13. MOTILIUM-M 10MG [Concomitant]
     Indication: PROPHYLAXIS AGAINST GASTROINTESTINAL ULCER
     Dosage: 4T
     Route: 048
     Dates: start: 20150519

REACTIONS (1)
  - Upper limb fracture [Recovered/Resolved with Sequelae]

NARRATIVE: CASE EVENT DATE: 20150819
